FAERS Safety Report 23574585 (Version 3)
Quarter: 2024Q1

REPORT INFORMATION
  Report Type: Spontaneous
  Country: US (occurrence: US)
  Receive Date: 20240228
  Receipt Date: 20240311
  Transmission Date: 20240410
  Serious: No
  Sender: FDA-Public Use
  Company Number: US-JNJFOC-20240250180

PATIENT
  Age: 76 Year
  Sex: Female

DRUGS (1)
  1. TREMFYA [Suspect]
     Active Substance: GUSELKUMAB
     Indication: Psoriasis
     Route: 065

REACTIONS (8)
  - Accidental exposure to product [Unknown]
  - Device defective [Unknown]
  - Drug ineffective [Unknown]
  - Product dose omission issue [Unknown]
  - Psoriasis [Unknown]
  - Pruritus [Unknown]
  - Skin exfoliation [Unknown]
  - Alopecia [Unknown]

NARRATIVE: CASE EVENT DATE: 20240216
